FAERS Safety Report 8831523 (Version 7)
Quarter: 2013Q4

REPORT INFORMATION
  Report Type: Spontaneous
  Country: US (occurrence: US)
  Receive Date: 20121009
  Receipt Date: 20131030
  Transmission Date: 20140711
  Serious: Yes (Hospitalization, Other)
  Sender: FDA-Public Use
  Company Number: US-009507513-1202USA02273

PATIENT
  Sex: Female
  Weight: 90.7 kg

DRUGS (6)
  1. FOSAMAX [Suspect]
     Indication: OSTEOPOROSIS
     Dosage: 70 MG, QW
     Route: 048
     Dates: start: 2005, end: 2010
  2. CALCIUM (UNSPECIFIED) [Concomitant]
  3. VITAMIN D (UNSPECIFIED) [Concomitant]
  4. VITAMINS (UNSPECIFIED) [Concomitant]
  5. CARDIZEM CD [Concomitant]
     Dosage: 180 MG, QD
     Route: 048
     Dates: start: 20030520
  6. CARDIZEM CD [Concomitant]
     Dosage: 120 MG, QD
     Route: 048
     Dates: start: 20040226

REACTIONS (80)
  - Nausea [Unknown]
  - Drug hypersensitivity [Unknown]
  - Abdominal pain [Unknown]
  - Oedema peripheral [Unknown]
  - Drug ineffective [Unknown]
  - Malaise [Unknown]
  - Cor pulmonale acute [Recovering/Resolving]
  - Accidental overdose [Unknown]
  - Postoperative respiratory failure [Unknown]
  - Hypokalaemia [Unknown]
  - Cardiac failure congestive [Unknown]
  - Hyponatraemia [Unknown]
  - Drug dependence [Unknown]
  - Aspiration [Unknown]
  - Endotracheal intubation [Unknown]
  - Chronic obstructive pulmonary disease [Unknown]
  - Knee arthroplasty [Unknown]
  - Urinary tract infection [Recovering/Resolving]
  - Cellulitis [Recovering/Resolving]
  - Polyuria [Recovering/Resolving]
  - Sepsis [Recovering/Resolving]
  - Decubitus ulcer [Recovering/Resolving]
  - Hypomagnesaemia [Unknown]
  - Rotator cuff repair [Recovering/Resolving]
  - Osteonecrosis of jaw [Not Recovered/Not Resolved]
  - Excoriation [Recovered/Resolved]
  - Generalised oedema [Recovering/Resolving]
  - Nutritional condition abnormal [Unknown]
  - Hepatic cyst [Not Recovered/Not Resolved]
  - Pulmonary mass [Recovered/Resolved]
  - Rotator cuff syndrome [Unknown]
  - Excoriation [Unknown]
  - Osteoarthritis [Unknown]
  - Fatigue [Unknown]
  - Cough [Unknown]
  - Wheezing [Unknown]
  - Palpitations [Unknown]
  - Balance disorder [Unknown]
  - Increased tendency to bruise [Unknown]
  - Fall [Not Recovered/Not Resolved]
  - Tooth extraction [Recovering/Resolving]
  - Impaired healing [Not Recovered/Not Resolved]
  - Depression [Unknown]
  - Neuropathy peripheral [Unknown]
  - Gout [Unknown]
  - Right ventricular failure [Recovering/Resolving]
  - Road traffic accident [Unknown]
  - Somnolence [Unknown]
  - Anaemia of chronic disease [Unknown]
  - Psoriasis [Unknown]
  - Contusion [Unknown]
  - Excoriation [Unknown]
  - Hypoglycaemia [Unknown]
  - Rib fracture [Recovered/Resolved]
  - Hypoxia [Unknown]
  - Oral disorder [Unknown]
  - Ligament sprain [Unknown]
  - Anger [Unknown]
  - Stress [Unknown]
  - Fall [Unknown]
  - Incision site infection [Unknown]
  - Diabetes mellitus [Unknown]
  - Back injury [Unknown]
  - Computerised tomogram abdomen abnormal [Unknown]
  - Helicobacter infection [Unknown]
  - Eye discharge [Unknown]
  - Emphysema [Unknown]
  - Pain [Not Recovered/Not Resolved]
  - Impaired healing [Not Recovered/Not Resolved]
  - Wound dehiscence [Unknown]
  - Malnutrition [Unknown]
  - Weight decreased [Unknown]
  - Fatigue [Unknown]
  - Tooth extraction [Unknown]
  - Weight decreased [Unknown]
  - Dysphagia [Unknown]
  - Osteomyelitis [Not Recovered/Not Resolved]
  - Drug hypersensitivity [Unknown]
  - Headache [Unknown]
  - Joint swelling [Unknown]
